FAERS Safety Report 12008065 (Version 4)
Quarter: 2019Q1

REPORT INFORMATION
  Report Type: Spontaneous
  Country: JP (occurrence: JP)
  Receive Date: 20160205
  Receipt Date: 20190207
  Transmission Date: 20190417
  Serious: Yes (Death, Other)
  Sender: FDA-Public Use
  Company Number: JP-TAKEDA-2016TJP001947

PATIENT
  Age: 88 Year
  Sex: Male

DRUGS (8)
  1. THROMBIN [Concomitant]
     Active Substance: THROMBIN
     Dosage: 20000 INTERNATIONAL UNIT
     Route: 065
  2. DICLOFENAC SODIUM. [Concomitant]
     Active Substance: DICLOFENAC SODIUM
     Indication: BACK PAIN
     Dosage: 3 DF, TID
     Route: 048
  3. TAKEPRON INTRAVENOUS 30MG. [Suspect]
     Active Substance: LANSOPRAZOLE
     Indication: HAEMATEMESIS
     Dosage: 60 MG, UNK
     Route: 042
  4. ALUMINUM HYDROXIDE GEL [Concomitant]
     Active Substance: ALGELDRATE
     Dosage: 80 ML, UNK
     Route: 048
  5. CLINDAMYCIN. [Concomitant]
     Active Substance: CLINDAMYCIN
     Dosage: 1200 MG, UNK
     Route: 042
  6. GENTAMICIN SULFATE. [Concomitant]
     Active Substance: GENTAMICIN SULFATE
     Dosage: 1200 MILLIGRAM
     Route: 042
  7. MEROPENEM                          /01250502/ [Concomitant]
     Active Substance: MEROPENEM
     Dosage: 1 G, UNK
     Route: 042
  8. GABEXATE MESILATE [Concomitant]
     Active Substance: GABEXATE MESYLATE
     Dosage: 1500 MG, UNK
     Route: 042

REACTIONS (2)
  - Respiratory failure [Fatal]
  - Pneumonia aspiration [Unknown]
